FAERS Safety Report 8817281 (Version 2)
Quarter: 2012Q4

REPORT INFORMATION
  Report Type: 
  Country: NZ (occurrence: NZ)
  Receive Date: 20121001
  Receipt Date: 20121008
  Transmission Date: 20130627
  Serious: Yes (Death)
  Sender: FDA-Public Use
  Company Number: NZ-ASTRAZENECA-2012SE74512

PATIENT
  Age: 32654 Day
  Sex: Male

DRUGS (2)
  1. ZOLADEX [Suspect]
     Indication: PROSTATE CANCER
     Route: 058
     Dates: start: 1986
  2. FLUTAMIDE [Suspect]
     Indication: PROSTATE CANCER
     Route: 065

REACTIONS (1)
  - Ventricular fibrillation [Fatal]
